FAERS Safety Report 8349797-9 (Version None)
Quarter: 2012Q2

REPORT INFORMATION
  Report Type: 
  Country: None (occurrence: None)
  Receive Date: 20120509
  Receipt Date: 20120509
  Transmission Date: 20120825
  Serious: No
  Sender: FDA-Public Use
  Company Number: None

PATIENT
  Age: 62 Year
  Sex: Female

DRUGS (1)
  1. ORENCIA [Suspect]
     Dosage: 125 MG ONCE A WEEK SUBCUTANEOUS
     Route: 058
     Dates: start: 20110901, end: 20120507

REACTIONS (1)
  - ALOPECIA [None]
